FAERS Safety Report 7060261-X (Version None)
Quarter: 2010Q4

REPORT INFORMATION
  Report Type: 
  Country: None (occurrence: None)
  Receive Date: 20101025
  Receipt Date: 20101019
  Transmission Date: 20110411
  Serious: Yes (Death)
  Sender: FDA-Public Use
  Company Number: JP-MEDIMMUNE-MEDI-0011648

PATIENT
  Sex: Male

DRUGS (2)
  1. SYNAGIS [Suspect]
     Route: 030
     Dates: start: 20090908, end: 20100105
  2. CARTEOLOL HYDROCHLORIDE [Concomitant]
     Route: 048
     Dates: start: 20090818, end: 20100202

REACTIONS (1)
  - ANOXIA [None]
